FAERS Safety Report 4875575-9 (Version None)
Quarter: 2006Q1

REPORT INFORMATION
  Report Type: 
  Country: None (occurrence: None)
  Receive Date: 20060109
  Receipt Date: 20051129
  Transmission Date: 20060701
  Serious: Yes (Death, Hospitalization)
  Sender: FDA-Public Use
  Company Number: FR-ROCHE-426940

PATIENT
  Age: 71 Year
  Sex: Male

DRUGS (5)
  1. CELLCEPT [Suspect]
     Route: 048
     Dates: start: 20050919, end: 20051021
  2. PROGRAF [Concomitant]
     Dates: start: 20050919
  3. CORTANCYL [Concomitant]
     Dates: start: 20050919
  4. BACTRIM [Concomitant]
     Dates: start: 20050919
  5. ZELITREX [Concomitant]
     Dates: start: 20050919

REACTIONS (12)
  - ACUTE RESPIRATORY DISTRESS SYNDROME [None]
  - APHASIA [None]
  - ATRIOVENTRICULAR BLOCK COMPLETE [None]
  - CARDIO-RESPIRATORY ARREST [None]
  - DRUG RESISTANCE [None]
  - INTERSTITIAL LUNG DISEASE [None]
  - LUNG DISORDER [None]
  - NOSOCOMIAL INFECTION [None]
  - PULMONARY FIBROSIS [None]
  - RESPIRATORY ACIDOSIS [None]
  - RESPIRATORY DISTRESS [None]
  - SEPTIC SHOCK [None]
